FAERS Safety Report 13668711 (Version 1)
Quarter: 2017Q2

REPORT INFORMATION
  Report Type: Spontaneous
  Country: US (occurrence: US)
  Receive Date: 20170620
  Receipt Date: 20170620
  Transmission Date: 20170830
  Serious: No
  Sender: FDA-Public Use
  Company Number: None

PATIENT
  Age: 71 Year
  Sex: Female
  Weight: 61.29 kg

DRUGS (6)
  1. MULTI-VIT W/MINERALS [Concomitant]
  2. NAPROXEN. [Suspect]
     Active Substance: NAPROXEN
     Indication: SWELLING
     Dosage: 1 PILL 2X DAY
     Route: 048
     Dates: start: 20170530, end: 20170606
  3. CALCIUM [Concomitant]
     Active Substance: CALCIUM
  4. CINNAMON. [Concomitant]
     Active Substance: CINNAMON
  5. NAPROXEN. [Suspect]
     Active Substance: NAPROXEN
     Indication: ARTHRALGIA
     Dosage: 1 PILL 2X DAY
     Route: 048
     Dates: start: 20170530, end: 20170606
  6. FISH OIL [Concomitant]
     Active Substance: FISH OIL

REACTIONS (2)
  - Confusional state [None]
  - Feeling abnormal [None]

NARRATIVE: CASE EVENT DATE: 20170607
